FAERS Safety Report 14389800 (Version 14)
Quarter: 2020Q2

REPORT INFORMATION
  Report Type: Report from Study
  Country: CA (occurrence: CA)
  Receive Date: 20180115
  Receipt Date: 20200504
  Transmission Date: 20200713
  Serious: Yes (Hospitalization, Other)
  Sender: FDA-Public Use
  Company Number: PHHY2017CA153083

PATIENT
  Age: 59 Year
  Sex: Male

DRUGS (1)
  1. SANDOSTATIN LAR DEPOT [Suspect]
     Active Substance: OCTREOTIDE ACETATE
     Indication: CARCINOID TUMOUR
     Dosage: 30 MG, QMO
     Route: 030
     Dates: start: 20170918

REACTIONS (21)
  - Device occlusion [Unknown]
  - Haemorrhage urinary tract [Unknown]
  - Calculus urinary [Unknown]
  - Blood pressure systolic increased [Unknown]
  - Nephrolithiasis [Unknown]
  - Blood urine [Unknown]
  - Hot flush [Unknown]
  - Malaise [Unknown]
  - Calculus bladder [Unknown]
  - Loss of consciousness [Unknown]
  - Pollakiuria [Unknown]
  - Dysuria [Unknown]
  - Cystitis [Unknown]
  - Large intestine polyp [Unknown]
  - Haemorrhage [Recovered/Resolved]
  - Haemorrhoids [Unknown]
  - Chills [Unknown]
  - Nausea [Not Recovered/Not Resolved]
  - Vomiting [Not Recovered/Not Resolved]
  - Asthenia [Unknown]
  - Diarrhoea [Unknown]

NARRATIVE: CASE EVENT DATE: 20171008
